FAERS Safety Report 7750318-X (Version None)
Quarter: 2011Q3

REPORT INFORMATION
  Report Type: 
  Country: None (occurrence: None)
  Receive Date: 20110912
  Receipt Date: 20110830
  Transmission Date: 20111222
  Serious: Yes (Other)
  Sender: FDA-Public Use
  Company Number: GER/UKI/11/0020631

PATIENT
  Age: 89 Year
  Sex: Female
  Weight: 70.76 kg

DRUGS (1)
  1. DONEPEZIL HCL [Suspect]
     Indication: PRODUCT USED FOR UNKNOWN INDICATION
     Dates: start: 20110110

REACTIONS (2)
  - CIRCULATORY COLLAPSE [None]
  - BRADYCARDIA [None]
